FAERS Safety Report 9116837 (Version 1)
Quarter: 2013Q1

REPORT INFORMATION
  Report Type: Spontaneous
  Country: US (occurrence: US)
  Receive Date: 20130225
  Receipt Date: 20130225
  Transmission Date: 20140127
  Serious: No
  Sender: FDA-Public Use
  Company Number: US-COVIDIEN/TYCO HEALTHCARE/MALLINCKRODT-T201300837

PATIENT
  Sex: Male

DRUGS (2)
  1. GABLOFEN [Suspect]
     Indication: MUSCLE SPASTICITY
     Dosage: 360 MCG/DAY
     Route: 037
     Dates: start: 201211
  2. LIORESAL [Concomitant]
     Indication: MUSCLE SPASTICITY
     Dosage: UNK
     Route: 037
     Dates: end: 201211

REACTIONS (2)
  - Activities of daily living impaired [Recovering/Resolving]
  - Drug ineffective [Recovered/Resolved]
